FAERS Safety Report 5642760-8 (Version None)
Quarter: 2008Q1

REPORT INFORMATION
  Report Type: 
  Country: None (occurrence: None)
  Receive Date: 20080131
  Receipt Date: 20071022
  Transmission Date: 20080703
  Serious: Yes (Hospitalization, Other)
  Sender: FDA-Public Use
  Company Number: PHEH2007US11815

PATIENT
  Age: 66 Year
  Sex: Male

DRUGS (3)
  1. TEKTURNA [Suspect]
     Indication: HYPERTENSION
     Dosage: 300 MG, QD, ORAL, 150 MG, QD,ORAL
     Route: 048
     Dates: start: 20070716, end: 20070729
  2. TEKTURNA [Suspect]
     Indication: HYPERTENSION
     Dosage: 300 MG, QD, ORAL, 150 MG, QD,ORAL
     Route: 048
     Dates: start: 20070814
  3. BENICAR [Suspect]
     Dosage: 40 MG, QD, ORAL
     Route: 048
     Dates: start: 20070724

REACTIONS (7)
  - ANGIOEDEMA [None]
  - BLOOD PRESSURE INADEQUATELY CONTROLLED [None]
  - DYSPHAGIA [None]
  - LIP OEDEMA [None]
  - PHARYNGEAL OEDEMA [None]
  - STRIDOR [None]
  - TONGUE OEDEMA [None]
